FAERS Safety Report 19210468 (Version 1)
Quarter: 2021Q2

REPORT INFORMATION
  Report Type: Other
  Country: US (occurrence: US)
  Receive Date: 20210504
  Receipt Date: 20210504
  Transmission Date: 20210717
  Serious: Yes (Death, Other)
  Sender: FDA-Public Use
  Company Number: US-ROCHE-2786948

PATIENT

DRUGS (12)
  1. NICOTINAMIDE [Suspect]
     Active Substance: NIACINAMIDE
     Indication: PLASMA CELL MYELOMA
  2. CYCLOPHOSPHAMIDE. [Suspect]
     Active Substance: CYCLOPHOSPHAMIDE
     Indication: NON-HODGKIN^S LYMPHOMA
     Dosage: X 3 DAYS
     Route: 042
  3. CYCLOPHOSPHAMIDE. [Suspect]
     Active Substance: CYCLOPHOSPHAMIDE
     Indication: PLASMA CELL MYELOMA
  4. NICOTINAMIDE [Suspect]
     Active Substance: NIACINAMIDE
     Indication: NON-HODGKIN^S LYMPHOMA
     Route: 065
  5. RITUXIMAB. [Suspect]
     Active Substance: RITUXIMAB
     Indication: NON-HODGKIN^S LYMPHOMA
     Dosage: X3
     Route: 042
  6. RITUXIMAB. [Suspect]
     Active Substance: RITUXIMAB
     Indication: PLASMA CELL MYELOMA
  7. FLUDARABINE [Suspect]
     Active Substance: FLUDARABINE PHOSPHATE
     Indication: PLASMA CELL MYELOMA
  8. FLUDARABINE [Suspect]
     Active Substance: FLUDARABINE PHOSPHATE
     Indication: NON-HODGKIN^S LYMPHOMA
     Dosage: X 3 DAYS
     Route: 042
  9. ELOTUZUMAB. [Suspect]
     Active Substance: ELOTUZUMAB
     Indication: PLASMA CELL MYELOMA
  10. INTERLEUKIN?2 [Suspect]
     Active Substance: ALDESLEUKIN
     Indication: NON-HODGKIN^S LYMPHOMA
     Dosage: 6 MILLION UNITS X 3 DOSES
     Route: 058
  11. ELOTUZUMAB. [Suspect]
     Active Substance: ELOTUZUMAB
     Indication: NON-HODGKIN^S LYMPHOMA
     Dosage: X3
     Route: 042
  12. INTERLEUKIN?2 [Suspect]
     Active Substance: ALDESLEUKIN
     Indication: PLASMA CELL MYELOMA

REACTIONS (6)
  - Neutropenia [Unknown]
  - Thrombocytopenia [Unknown]
  - Escherichia sepsis [Fatal]
  - Hypertension [Unknown]
  - Anaemia [Unknown]
  - Febrile neutropenia [Unknown]
